FAERS Safety Report 5089011-3 (Version None)
Quarter: 2006Q3

REPORT INFORMATION
  Report Type: 
  Country: None (occurrence: None)
  Receive Date: 20060825
  Receipt Date: 20060821
  Transmission Date: 20061208
  Serious: Yes (Life-Threatening)
  Sender: FDA-Public Use
  Company Number: 2006AC01520

PATIENT
  Age: 84 Year
  Sex: Female
  Weight: 50 kg

DRUGS (2)
  1. ROPIVACAINE [Suspect]
     Indication: ANAESTHESIA
     Route: 053
  2. MIDAZOLAM [Concomitant]
     Indication: PREMEDICATION
     Dosage: PRIOR TO START OF ANAESTHESIA
     Route: 048

REACTIONS (10)
  - ACCIDENTAL OVERDOSE [None]
  - BRADYCARDIA [None]
  - CARDIAC ARREST [None]
  - DIZZINESS [None]
  - GRAND MAL CONVULSION [None]
  - HEART RATE INCREASED [None]
  - INCORRECT DOSE ADMINISTERED [None]
  - LOSS OF CONSCIOUSNESS [None]
  - SOMNOLENCE [None]
  - VENTRICULAR EXTRASYSTOLES [None]
